FAERS Safety Report 24684453 (Version 1)
Quarter: 2024Q4

REPORT INFORMATION
  Report Type: Spontaneous
  Country: GR (occurrence: GR)
  Receive Date: 20241202
  Receipt Date: 20241202
  Transmission Date: 20250115
  Serious: Yes (Death, Other)
  Sender: AMGEN
  Company Number: GR-AMGEN-GRCSP2024233409

PATIENT

DRUGS (2)
  1. XGEVA [Suspect]
     Active Substance: DENOSUMAB
     Indication: Plasma cell myeloma
     Dosage: 120 MILLIGRAM, QMO
     Route: 065
  2. XGEVA [Suspect]
     Active Substance: DENOSUMAB
     Dosage: 60 MILLIGRAM, QMO
     Route: 065

REACTIONS (6)
  - Plasma cell myeloma [Unknown]
  - Osteonecrosis of jaw [Unknown]
  - Death [Fatal]
  - Hypocalcaemia [Unknown]
  - Therapy partial responder [Unknown]
  - Adverse event [Unknown]
